FAERS Safety Report 7358480-8 (Version None)
Quarter: 2011Q1

REPORT INFORMATION
  Report Type: 
  Country: None (occurrence: None)
  Receive Date: 20110317
  Receipt Date: 20110310
  Transmission Date: 20110831
  Serious: Yes (Hospitalization, Other)
  Sender: FDA-Public Use
  Company Number: US-ELI_LILLY_AND_COMPANY-US201103003810

PATIENT
  Sex: Female

DRUGS (5)
  1. BENTYL [Concomitant]
  2. LASIX [Concomitant]
  3. FORTEO [Suspect]
     Indication: OSTEOPOROSIS
     Dosage: 20 UG, DAILY (1/D)
  4. COREG [Concomitant]
  5. ZETIA [Concomitant]

REACTIONS (4)
  - WOUND INFECTION STAPHYLOCOCCAL [None]
  - PSEUDOMONAS INFECTION [None]
  - IMPAIRED HEALING [None]
  - ABSCESS [None]
